FAERS Safety Report 12110002 (Version 1)
Quarter: 2016Q1

REPORT INFORMATION
  Report Type: Spontaneous
  Country: US (occurrence: None)
  Receive Date: 20160223
  Receipt Date: 20160223
  Transmission Date: 20160526
  Serious: Yes (Disabling)
  Sender: FDA-Public Use
  Company Number: None

PATIENT
  Age: 59 Year
  Sex: Female
  Weight: 58.97 kg

DRUGS (6)
  1. AMITRIPTYLINE HCL [Concomitant]
     Active Substance: AMITRIPTYLINE
  2. PRILOSEC [Suspect]
     Active Substance: OMEPRAZOLE MAGNESIUM
     Indication: GASTROOESOPHAGEAL REFLUX DISEASE
     Dosage: 1 OR 2 PILLS ONCE DAILY TAKEN BY MOUTH
     Route: 048
     Dates: start: 19970201, end: 20151130
  3. SIMVASTATIN. [Concomitant]
     Active Substance: SIMVASTATIN
  4. ONE A DAY VITAMIN FOR WOMEN [Concomitant]
  5. CALCIUM CITRATE [Concomitant]
     Active Substance: CALCIUM CITRATE
  6. COENZYME Q10 [Concomitant]
     Active Substance: UBIDECARENONE

REACTIONS (1)
  - Pancreatitis chronic [None]

NARRATIVE: CASE EVENT DATE: 20151110
